FAERS Safety Report 21640771 (Version 6)
Quarter: 2023Q2

REPORT INFORMATION
  Report Type: Spontaneous
  Country: US (occurrence: US)
  Receive Date: 20221125
  Receipt Date: 20230630
  Transmission Date: 20230721
  Serious: Yes (Other)
  Sender: FDA-Public Use
  Company Number: US-BRISTOL-MYERS SQUIBB COMPANY-2022-143013

PATIENT
  Age: 81 Year
  Sex: Male

DRUGS (1)
  1. POMALYST [Suspect]
     Active Substance: POMALIDOMIDE
     Indication: Plasma cell myeloma refractory
     Dosage: TAKE 1 CAPSULE BY MOUTH DAILY ON DAYS 1-21 EVERY 28 DAYS?TAKE 1 CAPSULE BY MOUTH EVERY DAY ON DAYS 1
     Route: 048
     Dates: start: 20221112

REACTIONS (3)
  - Fatigue [Unknown]
  - Eye infection [Recovered/Resolved]
  - Dysgeusia [Recovered/Resolved]
